FAERS Safety Report 4723132-7 (Version None)
Quarter: 2005Q3

REPORT INFORMATION
  Report Type: 
  Country: None (occurrence: None)
  Receive Date: 20050719
  Receipt Date: 20040714
  Transmission Date: 20060218
  Serious: Yes (Other)
  Sender: FDA-Public Use
  Company Number: 2004223642US

PATIENT
  Age: 82 Year
  Sex: Male
  Weight: 97.5 kg

DRUGS (3)
  1. CELEBREX [Suspect]
     Indication: MONARTHRITIS
     Dosage: 200 MG, QD
     Dates: start: 20020901, end: 20040601
  2. CARDIZEM [Concomitant]
  3. PRAVACHOL [Concomitant]

REACTIONS (2)
  - ANAEMIA [None]
  - PLATELET COUNT INCREASED [None]
